APPROVED DRUG PRODUCT: GLIPIZIDE
Active Ingredient: GLIPIZIDE
Strength: 5MG
Dosage Form/Route: TABLET;ORAL
Application: A075795 | Product #001 | TE Code: AB
Applicant: APOTEX INC
Approved: Jun 13, 2001 | RLD: No | RS: No | Type: RX